FAERS Safety Report 8005711-7 (Version None)
Quarter: 2011Q4

REPORT INFORMATION
  Report Type: 
  Country: None (occurrence: None)
  Receive Date: 20111223
  Receipt Date: 20111215
  Transmission Date: 20120403
  Serious: Yes (Hospitalization)
  Sender: FDA-Public Use
  Company Number: PHHO2010US17212

PATIENT
  Sex: Male
  Weight: 108.84 kg

DRUGS (12)
  1. CRESTOR [Concomitant]
     Indication: HYPERCHOLESTEROLAEMIA
     Dosage: 20 MG, QD
     Dates: start: 20010101
  2. FUROSEMIDE [Suspect]
     Indication: CARDIAC FAILURE CONGESTIVE
     Dosage: 80 MG QAM AND 40 MG QPM
     Dates: start: 20060101
  3. MICARDIS [Concomitant]
     Indication: HYPERTENSION
     Dosage: UNK
  4. METOLAZONE [Suspect]
     Indication: CARDIAC FAILURE CONGESTIVE
     Dosage: 5 MG EVERY 10 DROP
     Dates: start: 20111007
  5. NIASPAN [Concomitant]
     Indication: HYPERCHOLESTEROLAEMIA
     Dosage: 500 MG, QHS
     Dates: start: 20010101
  6. ENALAPRIL MALEATE [Suspect]
     Indication: CARDIAC FAILURE CHRONIC
     Dosage: CODE NOT BROKEN
     Route: 048
     Dates: end: 20110501
  7. MICARDIS [Concomitant]
     Indication: CARDIAC FAILURE CONGESTIVE
  8. POTASSIUM SUPPLEMENTS [Suspect]
  9. BLINDED NO TREATMENT RECEIVED [Suspect]
     Indication: CARDIAC FAILURE CHRONIC
     Dosage: CODE NOT BROKEN
     Route: 048
     Dates: end: 20110501
  10. CARVEDILOL [Concomitant]
     Indication: CARDIAC FAILURE CONGESTIVE
     Dosage: 12.5 MG, BID
     Dates: start: 20060101
  11. ASPIRIN [Concomitant]
     Indication: CORONARY ARTERY DISEASE
     Dosage: 81 MG, QD
     Dates: start: 20010101
  12. VALSARTAN [Suspect]
     Indication: CARDIAC FAILURE CHRONIC
     Dosage: CODE NOT BROKEN
     Route: 048
     Dates: end: 20110501

REACTIONS (7)
  - VENTRICULAR TACHYCARDIA [None]
  - HYPOKALAEMIA [None]
  - CONCOMITANT DISEASE PROGRESSION [None]
  - HYPOMAGNESAEMIA [None]
  - DISEASE PROGRESSION [None]
  - CORONARY ARTERY DISEASE [None]
  - CARDIAC FAILURE CHRONIC [None]
